FAERS Safety Report 24020735 (Version 1)
Quarter: 2024Q2

REPORT INFORMATION
  Report Type: Spontaneous
  Country: US (occurrence: US)
  Receive Date: 20240627
  Receipt Date: 20240627
  Transmission Date: 20240715
  Serious: No
  Sender: FDA-Public Use
  Company Number: US-PFIZER INC-202400199779

PATIENT
  Age: 75 Year
  Sex: Female
  Weight: 60.33 kg

DRUGS (1)
  1. XELJANZ [Suspect]
     Active Substance: TOFACITINIB CITRATE
     Indication: Arthritis
     Dosage: UNK

REACTIONS (5)
  - Sciatica [Not Recovered/Not Resolved]
  - Disease recurrence [Not Recovered/Not Resolved]
  - Muscle tightness [Unknown]
  - Myalgia [Unknown]
  - Myositis [Unknown]
